FAERS Safety Report 16997752 (Version 1)
Quarter: 2019Q4

REPORT INFORMATION
  Report Type: Spontaneous
  Country: US (occurrence: US)
  Receive Date: 20191106
  Receipt Date: 20191106
  Transmission Date: 20200122
  Serious: Yes (Other)
  Sender: FDA-Public Use
  Company Number: US-ROCHE-2466066

PATIENT
  Sex: Female
  Weight: 102.6 kg

DRUGS (2)
  1. OCREVUS [Suspect]
     Active Substance: OCRELIZUMAB
     Dosage: ONGOING: UNKNOWN
     Route: 065
     Dates: start: 201802
  2. OCREVUS [Suspect]
     Active Substance: OCRELIZUMAB
     Indication: MULTIPLE SCLEROSIS
     Dosage: EACH INFUSION SEPARATED BY 2 WEEKS?DATE OF TREATMENT: 14/MAR/2018
     Route: 065
     Dates: start: 20180228, end: 20180314

REACTIONS (1)
  - Magnetic resonance imaging spinal abnormal [Unknown]
